FAERS Safety Report 16685677 (Version 5)
Quarter: 2021Q1

REPORT INFORMATION
  Report Type: Spontaneous
  Country: US (occurrence: US)
  Receive Date: 20190809
  Receipt Date: 20210330
  Transmission Date: 20210419
  Serious: Yes (Hospitalization, Other)
  Sender: FDA-Public Use
  Company Number: US-SA-2019SA212350

PATIENT
  Age: 56 Year
  Sex: Female

DRUGS (2)
  1. DUPIXENT [Suspect]
     Active Substance: DUPILUMAB
     Indication: DERMATITIS ATOPIC
     Dosage: 300 MG, QOW
     Route: 058
  2. DUPIXENT [Suspect]
     Active Substance: DUPILUMAB
     Dosage: 300 MG, QOW
     Route: 058
     Dates: start: 20200226

REACTIONS (11)
  - Product dose omission issue [Unknown]
  - Cataract [Unknown]
  - Post procedural pruritus [Recovering/Resolving]
  - Mammoplasty [Recovering/Resolving]
  - Gastric bypass [Recovering/Resolving]
  - Phlebectomy [Recovering/Resolving]
  - Postoperative wound infection [Recovering/Resolving]
  - Necrosis [Unknown]
  - Rash [Unknown]
  - Skin operation [Unknown]
  - Cyst [Unknown]

NARRATIVE: CASE EVENT DATE: 2019
